FAERS Safety Report 8382375-4 (Version None)
Quarter: 2012Q2

REPORT INFORMATION
  Report Type: 
  Country: None (occurrence: None)
  Receive Date: 20120522
  Receipt Date: 20110713
  Transmission Date: 20120825
  Serious: Yes (Other)
  Sender: FDA-Public Use
  Company Number: 2011-01341

PATIENT
  Age: 72 Year
  Sex: Male

DRUGS (3)
  1. THERACYS [Suspect]
     Indication: BLADDER CANCER
     Dosage: I. VES., BLADDER
     Dates: start: 20110317, end: 20110317
  2. THERACYS (BCG - IT (CONNAUGHT)), SANOFI PASTEUR LTD., D1 [Concomitant]
  3. THERACYS (BCG - IT (CONNAUGHT)), SANOFI PASTEUR LTD., D2 [Concomitant]

REACTIONS (8)
  - DYSPHAGIA [None]
  - EYE IRRITATION [None]
  - RASH [None]
  - APHASIA [None]
  - IMMOBILE [None]
  - HYPOAESTHESIA ORAL [None]
  - BLOOD PRESSURE DIASTOLIC DECREASED [None]
  - FLUSHING [None]
